FAERS Safety Report 14776311 (Version 1)
Quarter: 2018Q2

REPORT INFORMATION
  Report Type: Spontaneous
  Country: GB (occurrence: GB)
  Receive Date: 20180418
  Receipt Date: 20180418
  Transmission Date: 20180711
  Serious: Yes (Hospitalization, Other)
  Sender: FDA-Public Use
  Company Number: GB-ALLERGAN-1819929US

PATIENT
  Age: 79 Year
  Sex: Male

DRUGS (7)
  1. MESALAZINE UNK [Suspect]
     Active Substance: MESALAMINE
     Indication: CROHN^S DISEASE
     Route: 065
  2. MERCAPTAMINE [Suspect]
     Active Substance: CYSTEAMINE
     Indication: PRODUCT USED FOR UNKNOWN INDICATION
     Route: 065
  3. PRESOL RETENTION EDEMA [Suspect]
     Active Substance: PREDNISOLONE SODIUM PHOSPHATE
     Indication: CROHN^S DISEASE
     Route: 065
  4. MERCAPTOPURINE. [Suspect]
     Active Substance: MERCAPTOPURINE
     Indication: CROHN^S DISEASE
     Route: 065
  5. SULFASALAZINE. [Suspect]
     Active Substance: SULFASALAZINE
     Indication: CROHN^S DISEASE
     Route: 065
  6. AZATHIOPRINE. [Suspect]
     Active Substance: AZATHIOPRINE
     Indication: CROHN^S DISEASE
     Route: 065
  7. PREDSOL-N DROPS FOR EYE AND EAR [Suspect]
     Active Substance: NEOMYCIN SULFATE\PREDNISOLONE SODIUM PHOSPHATE
     Indication: CROHN^S DISEASE
     Route: 065

REACTIONS (10)
  - Intestinal diaphragm disease [Unknown]
  - Off label use [Unknown]
  - Normocytic anaemia [Unknown]
  - Weight decreased [Unknown]
  - Fall [Unknown]
  - Small intestinal obstruction [Unknown]
  - Gastrointestinal disorder [Unknown]
  - Hypoalbuminaemia [Unknown]
  - Laceration [Unknown]
  - Small intestinal stenosis [Unknown]
